FAERS Safety Report 8930133 (Version 2)
Quarter: 2012Q4

REPORT INFORMATION
  Report Type: 
  Country: GB (occurrence: GB)
  Receive Date: 20121128
  Receipt Date: 20121219
  Transmission Date: 20130627
  Serious: Yes (Hospitalization)
  Sender: FDA-Public Use
  Company Number: GB-WATSON-2012-20249

PATIENT
  Age: 64 Year
  Sex: Female
  Weight: 66 kg

DRUGS (3)
  1. CARBOPLATIN [Suspect]
     Indication: OVARIAN CANCER
     Dosage: 350 mg, unknown
     Route: 042
     Dates: start: 20120921
  2. PACLITAXEL [Suspect]
     Indication: OVARIAN CANCER
     Dosage: 141 mg, unknown
     Route: 042
     Dates: start: 20120921
  3. BEVACIZUMAB [Suspect]
     Indication: OVARIAN CANCER
     Dosage: 1000 mg every 21 days
     Route: 042
     Dates: start: 20120921, end: 20121105

REACTIONS (3)
  - Hypertension [Recovered/Resolved]
  - Syncope [Recovered/Resolved]
  - Neutropenic sepsis [Recovered/Resolved]
